FAERS Safety Report 7041946-8 (Version None)
Quarter: 2010Q4

REPORT INFORMATION
  Report Type: 
  Country: None (occurrence: None)
  Receive Date: 20101013
  Receipt Date: 20100602
  Transmission Date: 20110411
  Serious: No
  Sender: FDA-Public Use
  Company Number: US-ASTRAZENECA-2010SE25410

PATIENT
  Age: 20 Year
  Sex: Female

DRUGS (2)
  1. SYMBICORT [Suspect]
     Indication: ASTHMA
     Dosage: 160 MG
     Route: 055
  2. SYMBICORT [Suspect]
     Dosage: 80 MG
     Route: 055

REACTIONS (1)
  - BONE DENSITY DECREASED [None]
